FAERS Safety Report 18706923 (Version 1)
Quarter: 2021Q1

REPORT INFORMATION
  Report Type: Spontaneous
  Country: DE (occurrence: RU)
  Receive Date: 20210106
  Receipt Date: 20210106
  Transmission Date: 20210419
  Serious: Yes (Life-Threatening, Hospitalization, Other)
  Sender: FDA-Public Use
  Company Number: RU-ELI_LILLY_AND_COMPANY-RU202101000466

PATIENT
  Age: 55 Year
  Sex: Male
  Weight: 73 kg

DRUGS (16)
  1. DEXAMETHASONE. [Concomitant]
     Active Substance: DEXAMETHASONE
     Indication: NAUSEA
     Dosage: UNK UNK, UNKNOWN
     Route: 065
  2. CORDINORM [Concomitant]
     Indication: HYPERTENSION
     Dosage: 5 MG, UNK
     Route: 048
     Dates: start: 2020
  3. CO PERINEVA [Concomitant]
     Active Substance: INDAPAMIDE\PERINDOPRIL ERBUMINE
     Indication: HYPERTENSION
     Dosage: ?1 UNK, DAILY
  4. ERBITUX [Suspect]
     Active Substance: CETUXIMAB
     Indication: TONSIL CANCER METASTATIC
     Dosage: 475 MG, UNK
     Route: 042
     Dates: start: 20201013, end: 20201020
  5. FAMOTIDINE. [Concomitant]
     Active Substance: FAMOTIDINE
     Indication: ULCER
     Dosage: 20 MG, UNK
     Route: 065
     Dates: start: 20201013, end: 20201015
  6. EMEND [Concomitant]
     Active Substance: APREPITANT
     Indication: VOMITING
     Dosage: AT A DOSAGE OF 125?80?80 MG
     Route: 048
     Dates: start: 20201013, end: 20201015
  7. FLUOROURACIL. [Suspect]
     Active Substance: FLUOROURACIL
     Indication: TONSIL CANCER METASTATIC
     Dosage: 7600 MG, UNK
     Route: 041
     Dates: start: 20201013, end: 20201016
  8. ONDANSETRON [Concomitant]
     Active Substance: ONDANSETRON
     Indication: VOMITING
     Dosage: 16 MG, UNK
     Route: 041
     Dates: start: 20201013, end: 20201015
  9. CISPLATIN. [Concomitant]
     Active Substance: CISPLATIN
     Indication: TONSIL CANCER METASTATIC
     Dosage: 95 MG, UNK
     Route: 042
     Dates: start: 20201013, end: 20201014
  10. DEXAMETHASONE. [Concomitant]
     Active Substance: DEXAMETHASONE
     Indication: VOMITING
     Dosage: 8 MG, UNK
     Route: 042
     Dates: start: 20201013, end: 20201015
  11. HEPARIN [Concomitant]
     Active Substance: HEPARIN SODIUM
     Indication: THROMBOSIS PROPHYLAXIS
     Dosage: AT A SINGLE DOSE OF 5000 IU
     Route: 058
     Dates: start: 20201012, end: 20201020
  12. EMEND [Concomitant]
     Active Substance: APREPITANT
     Indication: NAUSEA
     Dosage: UNK UNK, UNKNOWN
     Route: 065
  13. SUPRASTIN [Concomitant]
     Active Substance: CHLOROPYRAMINE HYDROCHLORIDE
     Indication: PREMEDICATION
     Dosage: IN A SINGLE DOSE
     Route: 042
     Dates: start: 20201013, end: 20201013
  14. KETOPROFEN. [Concomitant]
     Active Substance: KETOPROFEN
     Indication: PAIN
     Dosage: 100 MG, UNK
     Route: 030
     Dates: start: 20201012, end: 20201018
  15. TRAMADOL. [Concomitant]
     Active Substance: TRAMADOL
     Indication: PAIN
     Dosage: 100 MG, UNK
     Route: 030
     Dates: start: 20201019, end: 20201019
  16. ONDANSETRON [Concomitant]
     Active Substance: ONDANSETRON
     Indication: NAUSEA
     Dosage: 8 MG, UNK
     Dates: start: 20201020

REACTIONS (3)
  - Acute myocardial infarction [Recovering/Resolving]
  - Blood pressure increased [Recovering/Resolving]
  - Infusion related reaction [Not Recovered/Not Resolved]

NARRATIVE: CASE EVENT DATE: 20201013
